FAERS Safety Report 9975904 (Version 1)
Quarter: 2014Q1

REPORT INFORMATION
  Report Type: Spontaneous
  Country: US (occurrence: US)
  Receive Date: 20140306
  Receipt Date: 20140306
  Transmission Date: 20141002
  Serious: No
  Sender: FDA-Public Use
  Company Number: US-PFIZER INC-2014062141

PATIENT
  Sex: Male

DRUGS (2)
  1. LYRICA [Suspect]
     Indication: NEUROPATHY PERIPHERAL
     Dosage: AT NIGHT
  2. GABAPENTIN [Suspect]
     Dosage: DURING THE DAY

REACTIONS (3)
  - Somnolence [Unknown]
  - Muscle spasms [Recovering/Resolving]
  - Drug tolerance [Unknown]
